FAERS Safety Report 18010450 (Version 2)
Quarter: 2020Q3

REPORT INFORMATION
  Report Type: Spontaneous
  Country: US (occurrence: US)
  Receive Date: 20200711
  Receipt Date: 20200729
  Transmission Date: 20201103
  Serious: No
  Sender: FDA-Public Use
  Company Number: US-TOLMAR, INC.-20US021623

PATIENT
  Sex: Male

DRUGS (1)
  1. DICLOFENAC SODIUM. [Suspect]
     Active Substance: DICLOFENAC SODIUM
     Indication: PRODUCT USED FOR UNKNOWN INDICATION
     Dosage: UNK
     Route: 065
     Dates: start: 20200607

REACTIONS (2)
  - Product dose omission issue [Unknown]
  - Product container seal issue [Unknown]

NARRATIVE: CASE EVENT DATE: 20200607
